FAERS Safety Report 7126477-9 (Version None)
Quarter: 2010Q4

REPORT INFORMATION
  Report Type: 
  Country: None (occurrence: None)
  Receive Date: 20101129
  Receipt Date: 20101123
  Transmission Date: 20110411
  Serious: Yes (Death, Other)
  Sender: FDA-Public Use
  Company Number: PHHY2010US60529

PATIENT
  Sex: Male

DRUGS (5)
  1. AFINITOR [Suspect]
     Indication: RENAL CELL CARCINOMA
     Dosage: 5 MG, QD
     Route: 048
  2. OXYCONTIN [Concomitant]
     Dosage: 60 MG, QD
  3. ATIVAN [Concomitant]
  4. DURAGESIC-100 [Concomitant]
     Dosage: UNK
     Dates: start: 20100831
  5. OXYFAST [Concomitant]
     Dosage: UNK
     Dates: start: 20100831

REACTIONS (13)
  - ABDOMINAL DISCOMFORT [None]
  - ANXIETY [None]
  - CONFUSIONAL STATE [None]
  - CRYING [None]
  - DEATH [None]
  - DYSPHEMIA [None]
  - EATING DISORDER [None]
  - GENERAL PHYSICAL HEALTH DETERIORATION [None]
  - LIP SWELLING [None]
  - METASTASES TO LIVER [None]
  - METASTASES TO PANCREAS [None]
  - PAIN [None]
  - STOMATITIS [None]
